FAERS Safety Report 7634622-1 (Version None)
Quarter: 2011Q3

REPORT INFORMATION
  Report Type: 
  Country: None (occurrence: None)
  Receive Date: 20110725
  Receipt Date: 20110720
  Transmission Date: 20111222
  Serious: Yes (Disabling)
  Sender: FDA-Public Use
  Company Number: US-MERCK-1105USA02542

PATIENT
  Age: 70 Year
  Sex: Female

DRUGS (9)
  1. FOSAMAX [Suspect]
     Indication: OSTEOPOROSIS PROPHYLAXIS
     Route: 048
     Dates: start: 19950101, end: 20080101
  2. FOSAMAX [Suspect]
     Route: 048
     Dates: start: 20080101, end: 20100301
  3. PRILOSEC [Concomitant]
     Route: 065
     Dates: start: 20010101, end: 20100401
  4. FUROSEMIDE [Concomitant]
     Indication: FLUID RETENTION
     Dosage: APPROX. 1954 - PRESENT
     Route: 065
  5. CLONIDINE [Concomitant]
     Indication: HYPERTENSION
     Route: 065
     Dates: start: 19910101
  6. BENICAR [Concomitant]
     Indication: BLOOD PRESSURE
     Route: 065
     Dates: start: 19910101
  7. FOSAMAX [Suspect]
     Indication: OSTEOPOROSIS
     Route: 048
     Dates: start: 19950101, end: 20080101
  8. FOSAMAX [Suspect]
     Route: 048
     Dates: start: 20080101, end: 20100301
  9. VITAMINS (UNSPECIFIED) [Concomitant]
     Route: 065
     Dates: start: 20000101

REACTIONS (8)
  - OSTEOPOROSIS [None]
  - DYSPEPSIA [None]
  - DEPRESSION [None]
  - FEMUR FRACTURE [None]
  - LOW TURNOVER OSTEOPATHY [None]
  - ANXIETY [None]
  - IMPAIRED HEALING [None]
  - STRESS FRACTURE [None]
